FAERS Safety Report 19241781 (Version 1)
Quarter: 2021Q2

REPORT INFORMATION
  Report Type: Spontaneous
  Country: US (occurrence: US)
  Receive Date: 20210511
  Receipt Date: 20210511
  Transmission Date: 20210717
  Serious: No
  Sender: FDA-Public Use
  Company Number: US-TEVA-2021-US-1906648

PATIENT
  Sex: Male

DRUGS (1)
  1. METOPROLOL TEVA [Suspect]
     Active Substance: METOPROLOL
     Indication: BLOOD PRESSURE ABNORMAL
     Route: 065

REACTIONS (2)
  - Therapeutic product effect incomplete [Unknown]
  - Ventricular extrasystoles [Unknown]
